FAERS Safety Report 6377794-1 (Version None)
Quarter: 2009Q3

REPORT INFORMATION
  Report Type: 
  Country: None (occurrence: None)
  Receive Date: 20090925
  Receipt Date: 20090914
  Transmission Date: 20100115
  Serious: Yes (Hospitalization, Other)
  Sender: FDA-Public Use
  Company Number: PR-PFIZER INC-2009268496

PATIENT
  Sex: Female

DRUGS (2)
  1. ZOLOFT [Suspect]
     Indication: DEPRESSION
  2. SYNTHROID [Suspect]

REACTIONS (4)
  - ARRHYTHMIA [None]
  - HYPERTHYROIDISM [None]
  - INTENTIONAL OVERDOSE [None]
  - SUICIDE ATTEMPT [None]
